FAERS Safety Report 9147242 (Version 2)
Quarter: 2013Q2

REPORT INFORMATION
  Report Type: Spontaneous
  Country: IT (occurrence: IT)
  Receive Date: 20130307
  Receipt Date: 20130412
  Transmission Date: 20140414
  Serious: Yes (Hospitalization)
  Sender: FDA-Public Use
  Company Number: IT-ASTRAZENECA-2013SE13356

PATIENT
  Age: 30238 Day
  Sex: Female

DRUGS (13)
  1. ARIMIDEX [Suspect]
     Indication: AXILLARY MASS
     Route: 048
     Dates: start: 20121221
  2. COUMADIN [Interacting]
     Indication: MYOCARDIAL ISCHAEMIA
     Route: 048
     Dates: start: 20030101, end: 201212
  3. COUMADIN [Interacting]
     Indication: MYOCARDIAL ISCHAEMIA
     Dosage: ONE QUARTER OF COUMADIN FOR 3 DAYS THEN 1/2 TABLET
     Route: 048
     Dates: start: 201212, end: 20130101
  4. EUTIROX [Concomitant]
  5. LASIX [Concomitant]
  6. NORVASC [Concomitant]
  7. CARDURA [Concomitant]
  8. MINITRAN [Concomitant]
     Dosage: 5 MG/24 H
     Route: 062
  9. KARVEA [Concomitant]
  10. FOLINA [Concomitant]
  11. DEURSIL [Concomitant]
  12. PANTORC [Concomitant]
  13. FERRO GRAD FOLIC [Concomitant]

REACTIONS (6)
  - Drug interaction [Unknown]
  - Activated partial thromboplastin time prolonged [Recovering/Resolving]
  - Cholestasis [Recovering/Resolving]
  - Haematuria [Recovering/Resolving]
  - Hyperbilirubinaemia [Recovering/Resolving]
  - Hypertransaminasaemia [Recovering/Resolving]
